FAERS Safety Report 4902212-7 (Version None)
Quarter: 2006Q1

REPORT INFORMATION
  Report Type: 
  Country: None (occurrence: None)
  Receive Date: 20060207
  Receipt Date: 20060126
  Transmission Date: 20060701
  Serious: Yes (Death, Other)
  Sender: FDA-Public Use
  Company Number: PL-JNJFOC-20060105848

PATIENT
  Age: 67 Year
  Sex: Male
  Weight: 86 kg

DRUGS (5)
  1. REOPRO [Suspect]
  2. REOPRO [Suspect]
  3. ACETYLSALICYLIC ACID SRT [Concomitant]
  4. HEPARIN [Concomitant]
  5. CLOPIDOGREL [Concomitant]

REACTIONS (2)
  - CARDIOVASCULAR DISORDER [None]
  - VENTRICULAR FIBRILLATION [None]
